FAERS Safety Report 8092888-0 (Version None)
Quarter: 2012Q1

REPORT INFORMATION
  Report Type: 
  Country: None (occurrence: None)
  Receive Date: 20120128
  Receipt Date: 20110726
  Transmission Date: 20120608
  Serious: No
  Sender: FDA-Public Use
  Company Number: US-ABBOTT-11P-163-0841916-00

PATIENT
  Age: 34 Year
  Sex: Female

DRUGS (5)
  1. ELAVIL [Concomitant]
     Indication: PAIN
     Dates: start: 20070101
  2. HUMIRA [Suspect]
     Indication: PSORIATIC ARTHROPATHY
     Dates: start: 20110705
  3. SINGULAIR [Concomitant]
     Indication: ASTHMA
  4. ELAVIL [Concomitant]
     Indication: SLEEP DISORDER
  5. YAZ [Concomitant]
     Indication: CONTRACEPTION

REACTIONS (1)
  - HEADACHE [None]
